FAERS Safety Report 19835427 (Version 1)
Quarter: 2021Q3

REPORT INFORMATION
  Report Type: Report from Study
  Country: CN (occurrence: CN)
  Receive Date: 20210916
  Receipt Date: 20210916
  Transmission Date: 20211014
  Serious: Yes (Other)
  Sender: FDA-Public Use
  Company Number: CN-JNJFOC-20210923394

PATIENT

DRUGS (2)
  1. PREDNISONE. [Concomitant]
     Active Substance: PREDNISONE
     Dosage: DECREASED FROM 38 MG/D [(30, 45) MG/D] AT BASELINE TO 8 MG/D [(5, 15) MG/D
  2. SIMPONI [Suspect]
     Active Substance: GOLIMUMAB
     Indication: UVEITIS
     Route: 058

REACTIONS (5)
  - Pneumonia bacterial [Unknown]
  - Product use in unapproved indication [Unknown]
  - Anaphylactic reaction [Unknown]
  - Transaminases increased [Unknown]
  - Off label use [Unknown]
